FAERS Safety Report 9670701 (Version 1)
Quarter: 2013Q4

REPORT INFORMATION
  Report Type: Spontaneous
  Country: RU (occurrence: RU)
  Receive Date: 20131106
  Receipt Date: 20131106
  Transmission Date: 20140711
  Serious: Yes (Disabling)
  Sender: FDA-Public Use
  Company Number: RU-ROCHE-1297842

PATIENT
  Sex: Male

DRUGS (5)
  1. PEGASYS [Suspect]
     Indication: HEPATITIS C
     Route: 058
     Dates: start: 20120709, end: 20130612
  2. REBETOL [Suspect]
     Indication: HEPATITIS C
     Route: 048
     Dates: start: 20120709, end: 20130612
  3. HEPTRAL [Concomitant]
     Indication: HEPATITIS C
     Dosage: COURSE DURATION - 1 MONTH, THEN 1 MONTH OF INTERRA
     Route: 065
  4. CREON [Concomitant]
     Dosage: PERMANENTLY
     Route: 065
  5. DUSPATALIN [Concomitant]
     Indication: HEPATITIS C
     Dosage: 2 TABLETS 2 TIMES A DAY ACCORDING TO THE SCHEDULE
     Route: 048

REACTIONS (3)
  - Pyrexia [Recovered/Resolved]
  - Weight decreased [Recovered/Resolved]
  - Retinal exudates [Recovering/Resolving]
